FAERS Safety Report 5157369-2 (Version None)
Quarter: 2006Q4

REPORT INFORMATION
  Report Type: 
  Country: None (occurrence: None)
  Receive Date: 20061127
  Receipt Date: 20061121
  Transmission Date: 20070319
  Serious: Yes (Other)
  Sender: FDA-Public Use
  Company Number: JP-AVENTIS-200613650JP

PATIENT
  Age: 6 Month

DRUGS (2)
  1. LASIX [Suspect]
     Route: 048
  2. ALDACTONE [Suspect]

REACTIONS (1)
  - CONVULSION [None]
